FAERS Safety Report 18510236 (Version 1)
Quarter: 2020Q4

REPORT INFORMATION
  Report Type: Report from Study
  Country: None (occurrence: US)
  Receive Date: 20201117
  Receipt Date: 20201117
  Transmission Date: 20210114
  Serious: Yes (Other)
  Sender: FDA-Public Use
  Company Number: US-ABBVIE-20K-163-3650486-00

PATIENT
  Sex: Female

DRUGS (1)
  1. HUMIRA [Suspect]
     Active Substance: ADALIMUMAB
     Indication: RHEUMATOID ARTHRITIS
     Dosage: CITRATE FREE
     Route: 058

REACTIONS (5)
  - Peripheral swelling [Recovering/Resolving]
  - Gastric haemorrhage [Unknown]
  - Anaemia [Not Recovered/Not Resolved]
  - Coma [Recovered/Resolved]
  - Dyspnoea [Recovered/Resolved]
